FAERS Safety Report 7454562-0 (Version None)
Quarter: 2011Q2

REPORT INFORMATION
  Report Type: 
  Country: None (occurrence: None)
  Receive Date: 20110503
  Receipt Date: 20101021
  Transmission Date: 20111010
  Serious: Yes (Hospitalization, Other)
  Sender: FDA-Public Use
  Company Number: US-BAYER-201018509NA

PATIENT
  Sex: Female
  Weight: 56 kg

DRUGS (2)
  1. VITAMINS [Concomitant]
     Dosage: UNK
     Dates: start: 20050101
  2. OCELLA [Suspect]
     Indication: ORAL CONTRACEPTION
     Dosage: UNK
     Route: 048
     Dates: start: 20080901, end: 20090901

REACTIONS (3)
  - GALLBLADDER DISORDER [None]
  - CHOLECYSTECTOMY [None]
  - CHOLELITHIASIS [None]
